FAERS Safety Report 19230668 (Version 1)
Quarter: 2021Q2

REPORT INFORMATION
  Report Type: Spontaneous
  Country: US (occurrence: US)
  Receive Date: 20210507
  Receipt Date: 20210507
  Transmission Date: 20210717
  Serious: Yes (Other)
  Sender: FDA-Public Use
  Company Number: None

PATIENT

DRUGS (1)
  1. PEROXIE CARE TARTAR CONTROL HEALTHY GUMS BAKING SODA AND PEROXIDE [Suspect]
     Active Substance: SODIUM FLUORIDE
     Indication: DENTAL DISORDER PROPHYLAXIS
     Dates: start: 20210429, end: 20210430

REACTIONS (7)
  - Glossodynia [None]
  - Ageusia [None]
  - Chemical burn [None]
  - Lip swelling [None]
  - Oral discomfort [None]
  - Mouth injury [None]
  - Hypoaesthesia oral [None]

NARRATIVE: CASE EVENT DATE: 20210430
